FAERS Safety Report 21872949 (Version 1)
Quarter: 2023Q1

REPORT INFORMATION
  Report Type: Spontaneous
  Country: US (occurrence: None)
  Receive Date: 20230115
  Receipt Date: 20230115
  Transmission Date: 20230417
  Serious: Yes (Hospitalization, Other)
  Sender: FDA-Public Use
  Company Number: None

PATIENT
  Age: 68 Year
  Sex: Female
  Weight: 81 kg

DRUGS (3)
  1. LISINOPRIL [Suspect]
     Active Substance: LISINOPRIL
     Indication: Hypertension
     Dosage: OTHER QUANTITY : 1 TABLET(S);?FREQUENCY : DAILY;?
     Route: 048
  2. ELIQUIS [Concomitant]
     Active Substance: APIXABAN
  3. LOSARTAN [Concomitant]
     Active Substance: LOSARTAN

REACTIONS (2)
  - Cough [None]
  - Thrombosis [None]

NARRATIVE: CASE EVENT DATE: 20221202
